FAERS Safety Report 5711535-3 (Version None)
Quarter: 2008Q2

REPORT INFORMATION
  Report Type: 
  Country: None (occurrence: None)
  Receive Date: 20080421
  Receipt Date: 20080403
  Transmission Date: 20081010
  Serious: Yes (Hospitalization, Other)
  Sender: FDA-Public Use
  Company Number: PH-SANOFI-SYNTHELABO-F01200800595

PATIENT
  Sex: Male

DRUGS (18)
  1. AZD6140/PLACEBO [Suspect]
     Dosage: UNK
     Route: 065
     Dates: start: 20070703, end: 20070706
  2. AZD6140/PLACEBO [Suspect]
     Dosage: UNK
     Route: 065
     Dates: start: 20070709
  3. ENOXAPARIN SODIUM [Concomitant]
     Dosage: UNK
     Route: 065
     Dates: start: 20070703, end: 20070706
  4. SPIRONOLACTONE [Concomitant]
     Dosage: UNK
     Route: 065
     Dates: start: 20070703
  5. ATORVASTATIN CALCIUM [Concomitant]
     Dosage: 80 MG
     Route: 065
     Dates: start: 20070703, end: 20070709
  6. ENALAPRIL MALEATE [Concomitant]
     Dosage: UNK
     Route: 065
     Dates: start: 20070704, end: 20070706
  7. ISOSORBIDE MONONITRATE [Concomitant]
     Dosage: UNK
     Route: 065
     Dates: start: 20070606, end: 20070706
  8. FUROSEMIDE [Concomitant]
     Dosage: UNK
     Route: 065
     Dates: start: 20070703, end: 20070705
  9. CAPTOPRIL [Concomitant]
     Dosage: UNK
     Route: 065
     Dates: start: 20070703, end: 20070705
  10. ISOSORBIDE DINITRATE [Concomitant]
     Dosage: UNK
     Route: 065
     Dates: start: 20070703, end: 20070704
  11. SOLOSA [Concomitant]
     Dosage: UNK
     Route: 065
     Dates: start: 20070706, end: 20070710
  12. DIAZEPAM [Concomitant]
     Dosage: UNK
     Route: 065
     Dates: start: 20070703, end: 20070705
  13. LACTULOSE [Concomitant]
     Dosage: UNK
     Route: 065
     Dates: start: 20070703, end: 20070706
  14. ASPIRIN [Concomitant]
     Dosage: UNK
     Route: 065
     Dates: start: 20070703
  15. PLAVIX [Concomitant]
     Dosage: UNK
     Route: 065
     Dates: start: 20070703, end: 20070703
  16. CLOPIDOGREL [Suspect]
     Indication: ACUTE CORONARY SYNDROME
     Dosage: 75 MG
     Route: 065
     Dates: start: 20070704, end: 20070707
  17. PLACEBO/CLOPIDOGREL [Suspect]
     Dosage: UNK
     Route: 065
     Dates: start: 20070709
  18. METOPROLOL TARTRATE [Suspect]
     Dosage: UNK
     Route: 065
     Dates: start: 20070703, end: 20070706

REACTIONS (3)
  - ATRIOVENTRICULAR BLOCK COMPLETE [None]
  - BRADYCARDIA [None]
  - HYPOTENSION [None]
